FAERS Safety Report 16117946 (Version 1)
Quarter: 2019Q1

REPORT INFORMATION
  Report Type: Spontaneous
  Country: US (occurrence: US)
  Receive Date: 20190326
  Receipt Date: 20190326
  Transmission Date: 20190418
  Serious: Yes (Hospitalization, Disabling, Other)
  Sender: FDA-Public Use
  Company Number: US-JNJFOC-20190329363

PATIENT
  Age: 49 Year
  Sex: Female
  Weight: 133.81 kg

DRUGS (1)
  1. INVOKANA [Suspect]
     Active Substance: CANAGLIFLOZIN
     Indication: TYPE 2 DIABETES MELLITUS
     Route: 048

REACTIONS (4)
  - Leg amputation [Unknown]
  - Localised infection [Unknown]
  - Osteomyelitis [Unknown]
  - Diabetic foot [Unknown]

NARRATIVE: CASE EVENT DATE: 201609
